FAERS Safety Report 11951953 (Version 1)
Quarter: 2016Q1

REPORT INFORMATION
  Report Type: Spontaneous
  Country: US (occurrence: US)
  Receive Date: 20160125
  Receipt Date: 20160125
  Transmission Date: 20160526
  Serious: Yes (Other)
  Sender: FDA-Public Use
  Company Number: US-ABBVIE-16P-163-1542882-00

PATIENT
  Sex: Male

DRUGS (2)
  1. DILAUDID [Suspect]
     Active Substance: HYDROMORPHONE HYDROCHLORIDE
     Indication: KNEE ARTHROPLASTY
     Route: 042
  2. DEPAKOTE [Suspect]
     Active Substance: DIVALPROEX SODIUM
     Indication: PRODUCT USED FOR UNKNOWN INDICATION
     Route: 065

REACTIONS (8)
  - Feeling hot [Unknown]
  - Localised infection [Unknown]
  - Heart rate increased [Unknown]
  - Pruritus [Unknown]
  - Pneumothorax [Unknown]
  - Knee arthroplasty [Unknown]
  - Oxygen saturation decreased [Unknown]
  - Inflammation [Unknown]
